FAERS Safety Report 7406699-X (Version None)
Quarter: 2011Q2

REPORT INFORMATION
  Report Type: 
  Country: None (occurrence: None)
  Receive Date: 20110411
  Receipt Date: 20110331
  Transmission Date: 20111010
  Serious: Yes (Hospitalization)
  Sender: FDA-Public Use
  Company Number: DE-ASTRAZENECA-2011SE18368

PATIENT
  Age: 34 Year
  Sex: Female

DRUGS (6)
  1. PROPOFOL [Suspect]
     Dosage: TWICE THROUGH HER CENTRAL VEIN CATHETER DURING INPATIENT TREATMENT
     Route: 042
  2. PROPOFOL [Suspect]
     Dosage: 5-7 TIMES A DAY
     Route: 042
  3. PROPOFOL [Suspect]
     Dosage: TWICE THROUGH HER CENTRAL VEIN CATHETER DURING INPATIENT TREATMENT
     Route: 042
  4. PROPOFOL [Suspect]
     Indication: ANAESTHESIA
     Route: 042
     Dates: start: 20000101
  5. PROPOFOL [Suspect]
     Dosage: 5-7 TIMES A DAY
     Route: 042
  6. PROPOFOL [Suspect]
     Indication: SEDATION
     Route: 042
     Dates: start: 20000101

REACTIONS (3)
  - INTENTIONAL DRUG MISUSE [None]
  - SOMNOLENCE [None]
  - DRUG DEPENDENCE [None]
